FAERS Safety Report 5409144-9 (Version None)
Quarter: 2007Q3

REPORT INFORMATION
  Report Type: 
  Country: None (occurrence: None)
  Receive Date: 20070713
  Receipt Date: 20070305
  Transmission Date: 20080115
  Serious: Yes (Hospitalization, Other)
  Sender: FDA-Public Use
  Company Number: US-JNJFOC-20061205283

PATIENT
  Age: 17 Year
  Sex: Female
  Weight: 58 kg

DRUGS (5)
  1. ORTHO EVRA [Suspect]
     Indication: MENSTRUATION IRREGULAR
     Dosage: TRANSDERMAL
     Route: 062
     Dates: start: 20050801, end: 20051101
  2. PENICILLIN [Concomitant]
  3. PRENDISONE (PREDNISONE) [Concomitant]
  4. IBUPROFEN [Concomitant]
  5. VICODIN [Concomitant]

REACTIONS (4)
  - DEEP VEIN THROMBOSIS [None]
  - HEADACHE [None]
  - IRRITABILITY [None]
  - PULMONARY EMBOLISM [None]
